FAERS Safety Report 5673991-9 (Version None)
Quarter: 2008Q1

REPORT INFORMATION
  Report Type: 
  Country: None (occurrence: None)
  Receive Date: 20080319
  Receipt Date: 20080319
  Transmission Date: 20080703
  Serious: Yes (Death, Life-Threatening, Hospitalization)
  Sender: FDA-Public Use
  Company Number: None

PATIENT
  Age: 76 Year
  Sex: Female
  Weight: 69.9 kg

DRUGS (19)
  1. VIDAZA [Suspect]
     Indication: MYELODYSPLASTIC SYNDROME
     Dosage: 170 MG DAILY X 5 DAYS EVERY 28 DAYS IV
     Route: 042
     Dates: start: 20071112
  2. VIDAZA [Suspect]
     Indication: MYELODYSPLASTIC SYNDROME
     Dosage: 170 MG DAILY X 5 DAYS EVERY 28 DAYS IV
     Route: 042
     Dates: start: 20071113
  3. VIDAZA [Suspect]
     Indication: MYELODYSPLASTIC SYNDROME
     Dosage: 170 MG DAILY X 5 DAYS EVERY 28 DAYS IV
     Route: 042
     Dates: start: 20071114
  4. VIDAZA [Suspect]
     Indication: MYELODYSPLASTIC SYNDROME
     Dosage: 170 MG DAILY X 5 DAYS EVERY 28 DAYS IV
     Route: 042
     Dates: start: 20071115
  5. M.V.I. [Concomitant]
  6. NORVASC [Concomitant]
  7. SYNTHROID [Concomitant]
  8. VIT D [Concomitant]
  9. EVISTA [Concomitant]
  10. DITROPAN [Concomitant]
  11. LACTATE ENZYME [Concomitant]
  12. PRIMAXIN [Concomitant]
  13. DILAUDID [Concomitant]
  14. ZOFRAN [Concomitant]
  15. PROTONIX [Concomitant]
  16. PHENYLEPHRINE [Concomitant]
  17. VASOPRESSIN [Concomitant]
  18. ETOMIDATE [Concomitant]
  19. SUCCINYLCHOLINE CHLORIDE [Concomitant]

REACTIONS (14)
  - ABDOMINAL PAIN [None]
  - ACUTE MYOCARDIAL INFARCTION [None]
  - BREAST CANCER FEMALE [None]
  - COAGULOPATHY [None]
  - DISSEMINATED INTRAVASCULAR COAGULATION [None]
  - GASTROINTESTINAL HAEMORRHAGE [None]
  - GASTROINTESTINAL NECROSIS [None]
  - HAEMATEMESIS [None]
  - HYPOTENSION [None]
  - LACTIC ACIDOSIS [None]
  - MYELODYSPLASTIC SYNDROME [None]
  - PANCYTOPENIA [None]
  - RENAL FAILURE [None]
  - RESPIRATORY FAILURE [None]
